FAERS Safety Report 5851933-0 (Version None)
Quarter: 2008Q3

REPORT INFORMATION
  Report Type: 
  Country: None (occurrence: None)
  Receive Date: 20080819
  Receipt Date: 20080808
  Transmission Date: 20090109
  Serious: Yes (Hospitalization)
  Sender: FDA-Public Use
  Company Number: 2008BI017281

PATIENT
  Age: 36 Year
  Sex: Male

DRUGS (1)
  1. TYSABRI [Suspect]
     Indication: MULTIPLE SCLEROSIS
     Dosage: 300 MG; QM; IV
     Route: 042
     Dates: start: 20070426

REACTIONS (5)
  - DECUBITUS ULCER [None]
  - DISEASE COMPLICATION [None]
  - STAPHYLOCOCCAL SKIN INFECTION [None]
  - URINARY TRACT INFECTION [None]
  - WOUND [None]
